FAERS Safety Report 6031576-9 (Version None)
Quarter: 2008Q4

REPORT INFORMATION
  Report Type: 
  Country: None (occurrence: None)
  Receive Date: 20081229
  Receipt Date: 20080501
  Transmission Date: 20090506
  Serious: Yes (Hospitalization, Other)
  Sender: FDA-Public Use
  Company Number: 165482USA

PATIENT
  Age: 51 Year
  Sex: Male
  Weight: 108.8633 kg

DRUGS (1)
  1. CLOZAPINE [Suspect]
     Dosage: ORAL
     Route: 048
     Dates: start: 20000101, end: 20070101

REACTIONS (1)
  - INTESTINAL OBSTRUCTION [None]
